FAERS Safety Report 16408366 (Version 1)
Quarter: 2019Q2

REPORT INFORMATION
  Report Type: Spontaneous
  Country: CN (occurrence: CN)
  Receive Date: 20190610
  Receipt Date: 20190610
  Transmission Date: 20190711
  Serious: Yes (Other)
  Sender: FDA-Public Use
  Company Number: CN-ROCHE-2322541

PATIENT
  Age: 42 Year
  Sex: Female
  Weight: 64 kg

DRUGS (9)
  1. GEMCITABINE [Concomitant]
     Active Substance: GEMCITABINE\GEMCITABINE HYDROCHLORIDE
     Indication: INVASIVE BREAST CARCINOMA
     Dosage: DAY1, DAY8
     Route: 065
  2. CIS-PLATINUM [Concomitant]
     Active Substance: CISPLATIN
     Indication: INVASIVE BREAST CARCINOMA
     Dosage: FROM DAY1 TO DAY3
     Route: 065
  3. PACLITAXEL. [Concomitant]
     Active Substance: PACLITAXEL
     Indication: INVASIVE BREAST CARCINOMA
     Dosage: DAY1
     Route: 065
  4. LETROZOLE. [Concomitant]
     Active Substance: LETROZOLE
     Indication: INVASIVE BREAST CARCINOMA
  5. TRASTUZUMAB. [Suspect]
     Active Substance: TRASTUZUMAB
     Indication: INVASIVE BREAST CARCINOMA
     Route: 065
  6. ZOLEDRONIC ACID [Concomitant]
     Active Substance: ZOLEDRONIC ACID
     Indication: INVASIVE BREAST CARCINOMA
  7. FULVESTRANT. [Concomitant]
     Active Substance: FULVESTRANT
     Indication: INVASIVE BREAST CARCINOMA
     Route: 065
  8. EPIRUBICIN [Concomitant]
     Active Substance: EPIRUBICIN
     Indication: INVASIVE BREAST CARCINOMA
     Dosage: DAY1
     Route: 065
  9. TAMOXIFEN [Concomitant]
     Active Substance: TAMOXIFEN
     Indication: INVASIVE BREAST CARCINOMA
     Route: 065

REACTIONS (6)
  - Mammary duct ectasia [Unknown]
  - Breast cancer recurrent [Unknown]
  - Resorption bone increased [Unknown]
  - Drug resistance [Unknown]
  - Asthenia [Unknown]
  - Bone marrow failure [Unknown]
